FAERS Safety Report 6366523-3 (Version None)
Quarter: 2009Q3

REPORT INFORMATION
  Report Type: 
  Country: None (occurrence: None)
  Receive Date: 20090921
  Receipt Date: 20090908
  Transmission Date: 20100115
  Serious: Yes (Other)
  Sender: FDA-Public Use
  Company Number: FR-BAYER-200931817GPV

PATIENT
  Age: 71 Year
  Sex: Male

DRUGS (13)
  1. CIFLOX [Suspect]
     Indication: KLEBSIELLA INFECTION
     Route: 048
     Dates: start: 20090429, end: 20090517
  2. ALLOPURINOL [Suspect]
     Indication: DRUG USE FOR UNKNOWN INDICATION
     Route: 048
     Dates: end: 20090520
  3. FURADANTIN [Suspect]
     Indication: KLEBSIELLA INFECTION
     Route: 048
     Dates: start: 20090517, end: 20090520
  4. HEMIGOXINE [Concomitant]
     Indication: DRUG USE FOR UNKNOWN INDICATION
     Dosage: TOTAL DAILY DOSE: 0.125 MG  UNIT DOSE: 0.125 MG
     Route: 065
  5. TEMERIT [Concomitant]
     Indication: DRUG USE FOR UNKNOWN INDICATION
     Dosage: TOTAL DAILY DOSE: 5 MG  UNIT DOSE: 5 MG
     Route: 065
  6. BUMEX [Concomitant]
     Indication: DRUG USE FOR UNKNOWN INDICATION
     Dosage: TOTAL DAILY DOSE: 1 MG  UNIT DOSE: 1 MG
     Route: 065
  7. COVERSYL [Concomitant]
     Indication: DRUG USE FOR UNKNOWN INDICATION
     Dosage: AS USED: 10
     Route: 065
  8. GLIMEPIRIDE [Concomitant]
     Indication: DRUG USE FOR UNKNOWN INDICATION
     Route: 065
  9. ALFUZOSIN HCL [Concomitant]
     Indication: DRUG USE FOR UNKNOWN INDICATION
     Route: 065
  10. KARDEGIC [Concomitant]
     Indication: DRUG USE FOR UNKNOWN INDICATION
     Dosage: AS USED: 75
     Route: 065
  11. TAHOR [Concomitant]
     Indication: DRUG USE FOR UNKNOWN INDICATION
     Dosage: AS USED: 10
     Route: 065
  12. ROCEPHIN [Concomitant]
     Indication: URINARY TRACT INFECTION
     Route: 065
  13. GENTALLINE [Concomitant]
     Indication: URINARY TRACT INFECTION
     Route: 065

REACTIONS (5)
  - ERYTHEMA [None]
  - ORAL DISORDER [None]
  - RASH [None]
  - RASH PRURITIC [None]
  - TOXIC SKIN ERUPTION [None]
